FAERS Safety Report 24441094 (Version 2)
Quarter: 2024Q4

REPORT INFORMATION
  Report Type: Report from Study
  Country: DE (occurrence: DE)
  Receive Date: 20241016
  Receipt Date: 20241017
  Transmission Date: 20250115
  Serious: No
  Sender: ROCHE
  Company Number: DE-ROCHE-3467663

PATIENT
  Age: 3 Year
  Sex: Male
  Weight: 16.0 kg

DRUGS (3)
  1. EMICIZUMAB [Suspect]
     Active Substance: EMICIZUMAB
     Indication: Haemophilia A with anti factor VIII
     Route: 058
     Dates: start: 20210629, end: 20210720
  2. EMICIZUMAB [Suspect]
     Active Substance: EMICIZUMAB
     Dosage: MOST RECENT DOSE RECEIVED ON 19/OCT/2021
     Route: 058
     Dates: start: 20210727
  3. EMICIZUMAB [Suspect]
     Active Substance: EMICIZUMAB
     Route: 058
     Dates: start: 20211026

REACTIONS (1)
  - Dental caries [Recovered/Resolved]

NARRATIVE: CASE EVENT DATE: 20230516
